FAERS Safety Report 7514221-2 (Version None)
Quarter: 2011Q2

REPORT INFORMATION
  Report Type: 
  Country: None (occurrence: None)
  Receive Date: 20110531
  Receipt Date: 20110519
  Transmission Date: 20111010
  Serious: Yes (Hospitalization)
  Sender: FDA-Public Use
  Company Number: KR-GENENTECH-304265

PATIENT
  Sex: Male
  Weight: 70.5 kg

DRUGS (41)
  1. CYCLOPHOSPHAMIDE [Suspect]
     Dosage: UNK
     Route: 042
     Dates: start: 20100416, end: 20100714
  2. DOXORUBICIN HCL [Suspect]
     Dosage: UNK
     Route: 042
     Dates: start: 20100416, end: 20100714
  3. PLACEBO [Suspect]
     Dosage: UNK
     Route: 042
     Dates: start: 20100416, end: 20100714
  4. PREDNISONE TAB [Suspect]
     Dosage: UNK
     Route: 042
     Dates: start: 20100416, end: 20100714
  5. FAMOTIDINE [Concomitant]
     Indication: PRODUCT USED FOR UNKNOWN INDICATION
     Dosage: UNK
     Dates: start: 20100708, end: 20100720
  6. FENTANYL-100 [Concomitant]
     Indication: PRODUCT USED FOR UNKNOWN INDICATION
     Dosage: UNK
     Route: 062
     Dates: start: 20100415
  7. CALCIUM CARBONATE/CHOLECALCIFEROL [Concomitant]
     Indication: PRODUCT USED FOR UNKNOWN INDICATION
     Dosage: 1 UNK, QD
     Dates: start: 20100712, end: 20100731
  8. PREDNISOLONE [Suspect]
     Dosage: UNK
     Route: 048
     Dates: start: 20100721, end: 20100725
  9. MEGESTROL ACETATE [Concomitant]
     Indication: PRODUCT USED FOR UNKNOWN INDICATION
     Dosage: UNK
     Dates: start: 20100711, end: 20100731
  10. BLINDED BEVACIZUMAB [Suspect]
     Dosage: UNK
     Route: 042
     Dates: start: 20100416, end: 20100714
  11. PREDNISOLONE [Suspect]
     Indication: DIFFUSE LARGE B-CELL LYMPHOMA
     Dosage: 500 MG, UNK
     Route: 048
     Dates: start: 20100416, end: 20100714
  12. PREDNISOLONE [Suspect]
     Dosage: UNK
     Dates: start: 20100809, end: 20100809
  13. MAGNESIUM OXIDE [Concomitant]
     Indication: PRODUCT USED FOR UNKNOWN INDICATION
     Dosage: UNK
     Dates: start: 20100802, end: 20100802
  14. VANCOMYCIN [Concomitant]
     Indication: PRODUCT USED FOR UNKNOWN INDICATION
     Dosage: UNK
     Dates: start: 20100802, end: 20100802
  15. PETHIDINE HCL [Concomitant]
     Indication: PRODUCT USED FOR UNKNOWN INDICATION
     Dosage: UNK
     Dates: start: 20100709, end: 20100709
  16. POVIDONE IODINE [Concomitant]
     Indication: PRODUCT USED FOR UNKNOWN INDICATION
     Dosage: UNK
     Route: 049
     Dates: start: 20100709, end: 20100709
  17. METFORMIN HCL [Concomitant]
     Indication: PRODUCT USED FOR UNKNOWN INDICATION
     Dosage: UNK
     Dates: start: 20100704, end: 20100804
  18. METFORMIN HCL [Concomitant]
     Dosage: UNK
     Dates: start: 20100805
  19. REBAMIPIDE [Concomitant]
     Indication: PRODUCT USED FOR UNKNOWN INDICATION
     Dosage: UNK
     Dates: start: 20100711, end: 20100731
  20. LACTULOSE [Concomitant]
     Indication: PRODUCT USED FOR UNKNOWN INDICATION
     Dosage: UNK
     Dates: start: 20100711, end: 20100711
  21. MAGNESIUM OXIDE [Concomitant]
     Dosage: 1500 MG, UNK
     Dates: start: 20100803
  22. PROPACETAMOL [Concomitant]
     Indication: PRODUCT USED FOR UNKNOWN INDICATION
     Dosage: UNK
     Dates: start: 20100801, end: 20100801
  23. RITUXIMAB [Suspect]
     Indication: DIFFUSE LARGE B-CELL LYMPHOMA
     Dosage: 700 MG, UNK
     Route: 042
     Dates: start: 20100416, end: 20100714
  24. CYCLOPHOSPHAMIDE [Suspect]
     Indication: DIFFUSE LARGE B-CELL LYMPHOMA
     Dosage: 1400 MG, UNK
     Route: 042
     Dates: start: 20100416
  25. DOXORUBICIN HCL [Suspect]
     Indication: DIFFUSE LARGE B-CELL LYMPHOMA
     Dosage: 92 MG, UNK
     Route: 042
     Dates: start: 20100416
  26. DOXORUBICIN HCL [Suspect]
     Dosage: UNK
     Route: 042
     Dates: start: 20100721, end: 20100721
  27. PETHIDINE HCL [Concomitant]
     Dosage: UNK
     Dates: start: 20100803, end: 20100803
  28. AMLODIPINE [Concomitant]
     Indication: PRODUCT USED FOR UNKNOWN INDICATION
     Dosage: UNK
     Dates: start: 20100711, end: 20100731
  29. LACTULOSE [Concomitant]
     Dosage: UNK
     Dates: start: 20100712, end: 20100731
  30. PIPERACILLIN AND TAZOBACTAM [Concomitant]
     Indication: PRODUCT USED FOR UNKNOWN INDICATION
     Dosage: UNK
     Dates: start: 20100801, end: 20100801
  31. LENOGRASTIM [Concomitant]
     Indication: PRODUCT USED FOR UNKNOWN INDICATION
     Dosage: UNK
     Dates: start: 20100801, end: 20100802
  32. ATROPINE [Concomitant]
     Indication: PRODUCT USED FOR UNKNOWN INDICATION
     Dosage: UNK
     Dates: start: 20100709, end: 20100709
  33. METFORMIN HCL [Concomitant]
     Dosage: UNK
     Dates: start: 20100710, end: 20100731
  34. BLINDED RITUXIMAB [Suspect]
     Dosage: UNK
     Route: 042
     Dates: start: 20100416, end: 20100714
  35. VINCRISTINE [Suspect]
     Dosage: UNK
     Route: 042
     Dates: start: 20100416, end: 20100714
  36. CYCLOPHOSPHAMIDE [Suspect]
     Dosage: UNK
     Route: 042
     Dates: start: 20100721, end: 20100721
  37. VINCRISTINE [Suspect]
     Indication: DIFFUSE LARGE B-CELL LYMPHOMA
     Dosage: 2 MG, UNK
     Route: 042
     Dates: start: 20100416
  38. VINCRISTINE [Suspect]
     Dosage: UNK
     Route: 042
     Dates: start: 20100721, end: 20100721
  39. VILDAGLIPTINE [Concomitant]
     Indication: PRODUCT USED FOR UNKNOWN INDICATION
     Dosage: UNK
     Dates: start: 20100711, end: 20100731
  40. CLOPIDOGREL [Concomitant]
     Indication: PRODUCT USED FOR UNKNOWN INDICATION
     Dosage: UNK
     Dates: start: 20100711, end: 20100731
  41. PIPERACILLIN AND TAZOBACTAM [Concomitant]
     Dosage: UNK
     Dates: start: 20100802, end: 20100802

REACTIONS (3)
  - PNEUMONIA [None]
  - FEBRILE NEUTROPENIA [None]
  - TRAUMATIC LUNG INJURY [None]
